FAERS Safety Report 23183748 (Version 3)
Quarter: 2024Q1

REPORT INFORMATION
  Report Type: Spontaneous
  Country: DE (occurrence: DE)
  Receive Date: 20231114
  Receipt Date: 20240104
  Transmission Date: 20240410
  Serious: Yes (Hospitalization)
  Sender: FDA-Public Use
  Company Number: DE-LUNDBECK-DKLU3070020

PATIENT
  Age: 26 Year
  Sex: Male

DRUGS (4)
  1. CIPRALEX [Suspect]
     Active Substance: ESCITALOPRAM OXALATE
     Indication: Compulsions
     Dosage: FILM-COATED TABLETS
     Route: 065
  2. CIPRALEX [Suspect]
     Active Substance: ESCITALOPRAM OXALATE
     Indication: Fear
     Route: 065
  3. CIPRALEX [Suspect]
     Active Substance: ESCITALOPRAM OXALATE
     Indication: Fear
     Route: 065
  4. MIRTAZAPINE [Concomitant]
     Active Substance: MIRTAZAPINE
     Indication: Product used for unknown indication
     Route: 065

REACTIONS (17)
  - Loss of consciousness [Recovering/Resolving]
  - Wrong technique in product usage process [Unknown]
  - Headache [Recovering/Resolving]
  - Malaise [Recovering/Resolving]
  - Restlessness [Recovering/Resolving]
  - Panic reaction [Recovering/Resolving]
  - Condition aggravated [Recovering/Resolving]
  - Therapeutic product effect decreased [Recovering/Resolving]
  - Stress [Recovering/Resolving]
  - Palpitations [Recovering/Resolving]
  - Sensory processing sensitivity [Recovering/Resolving]
  - Underdose [Unknown]
  - Drug withdrawal syndrome [Unknown]
  - Product use in unapproved indication [Unknown]
  - General physical health deterioration [Unknown]
  - Reactive gastropathy [Recovering/Resolving]
  - Social problem [Unknown]
